FAERS Safety Report 9305366 (Version 1)
Quarter: 2013Q2

REPORT INFORMATION
  Report Type: Spontaneous
  Country: BR (occurrence: BR)
  Receive Date: 20130523
  Receipt Date: 20130523
  Transmission Date: 20140414
  Serious: Yes (Hospitalization)
  Sender: FDA-Public Use
  Company Number: BR-BRISTOL-MYERS SQUIBB COMPANY-18916262

PATIENT
  Age: 58 Year
  Sex: Male

DRUGS (8)
  1. GLIFAGE XR [Suspect]
     Indication: DIABETES MELLITUS MANAGEMENT
     Dates: start: 20111201
  2. LOSARTAN [Concomitant]
  3. SOMALGIN [Concomitant]
  4. SODIUM FLUORIDE [Concomitant]
  5. DIAMICRON [Concomitant]
  6. GLIMEPIRIDE [Concomitant]
  7. ATORVASTATIN [Concomitant]
  8. CILOSTAZOL [Concomitant]

REACTIONS (5)
  - Obstructive airways disorder [Unknown]
  - Haemorrhage [Unknown]
  - Nasopharyngitis [Unknown]
  - Blood glucose increased [Unknown]
  - Medication residue present [Unknown]
